FAERS Safety Report 7981616-2 (Version None)
Quarter: 2011Q4

REPORT INFORMATION
  Report Type: 
  Country: None (occurrence: None)
  Receive Date: 20111215
  Receipt Date: 20111207
  Transmission Date: 20120403
  Serious: Yes (Other)
  Sender: FDA-Public Use
  Company Number: DK-BRISTOL-MYERS SQUIBB COMPANY-16275612

PATIENT
  Sex: Male

DRUGS (2)
  1. PALIPERIDONE [Suspect]
     Indication: SCHIZOAFFECTIVE DISORDER
     Dosage: TRADE: XEPLION FORM: INJ. ALSO ON 29NOV11.
     Route: 030
     Dates: start: 20110601
  2. ABILIFY [Suspect]
     Route: 065

REACTIONS (1)
  - PSYCHOTIC DISORDER [None]
